FAERS Safety Report 12669273 (Version 2)
Quarter: 2016Q4

REPORT INFORMATION
  Report Type: Spontaneous
  Country: US (occurrence: US)
  Receive Date: 20160820
  Receipt Date: 20161103
  Transmission Date: 20170207
  Serious: Yes (Hospitalization)
  Sender: FDA-Public Use
  Company Number: US-ASTRAZENECA-2016SE87593

PATIENT
  Age: 905 Month
  Sex: Female
  Weight: 67.6 kg

DRUGS (15)
  1. SYMBICORT [Suspect]
     Active Substance: BUDESONIDE\FORMOTEROL FUMARATE DIHYDRATE
     Indication: EMPHYSEMA
     Dosage: 160/4.5UG,UNKNOWN
     Route: 055
     Dates: start: 2015
  2. NEBULIZER TREATMENTS [Concomitant]
     Indication: ASTHMA
     Route: 055
  3. SYMBICORT [Suspect]
     Active Substance: BUDESONIDE\FORMOTEROL FUMARATE DIHYDRATE
     Indication: EMPHYSEMA
     Dosage: 160/4.5UG,2 PUFFS 2 TIMES A DAY
     Route: 055
     Dates: start: 201606
  4. PROAIR RESCUE INHALER [Concomitant]
     Indication: EMPHYSEMA
     Route: 055
  5. NEBULIZER TREATMENTS [Concomitant]
     Indication: CHRONIC OBSTRUCTIVE PULMONARY DISEASE
     Route: 055
  6. PROAIR RESCUE INHALER [Concomitant]
     Indication: CHRONIC OBSTRUCTIVE PULMONARY DISEASE
     Route: 055
  7. OXYGEN. [Concomitant]
     Active Substance: OXYGEN
     Indication: ASTHMA
     Route: 045
  8. SYMBICORT [Suspect]
     Active Substance: BUDESONIDE\FORMOTEROL FUMARATE DIHYDRATE
     Indication: ASTHMA
     Dosage: 160/4.5UG,2 PUFFS 2 TIMES A DAY
     Route: 055
     Dates: start: 201606
  9. PROAIR RESCUE INHALER [Concomitant]
     Indication: ASTHMA
     Route: 055
  10. NEBULIZER TREATMENTS [Concomitant]
     Indication: EMPHYSEMA
     Route: 055
  11. OXYGEN. [Concomitant]
     Active Substance: OXYGEN
     Indication: CHRONIC OBSTRUCTIVE PULMONARY DISEASE
     Route: 045
  12. OXYGEN. [Concomitant]
     Active Substance: OXYGEN
     Indication: EMPHYSEMA
     Route: 045
  13. SYMBICORT [Suspect]
     Active Substance: BUDESONIDE\FORMOTEROL FUMARATE DIHYDRATE
     Indication: CHRONIC OBSTRUCTIVE PULMONARY DISEASE
     Dosage: 160/4.5UG,UNKNOWN
     Route: 055
     Dates: start: 2015
  14. SYMBICORT [Suspect]
     Active Substance: BUDESONIDE\FORMOTEROL FUMARATE DIHYDRATE
     Indication: CHRONIC OBSTRUCTIVE PULMONARY DISEASE
     Dosage: 160/4.5UG,2 PUFFS 2 TIMES A DAY
     Route: 055
     Dates: start: 201606
  15. SYMBICORT [Suspect]
     Active Substance: BUDESONIDE\FORMOTEROL FUMARATE DIHYDRATE
     Indication: ASTHMA
     Dosage: 160/4.5UG,UNKNOWN
     Route: 055
     Dates: start: 2015

REACTIONS (4)
  - Weight decreased [Unknown]
  - Intentional product misuse [Unknown]
  - Device malfunction [Unknown]
  - Skin ulcer [Unknown]

NARRATIVE: CASE EVENT DATE: 2016
